FAERS Safety Report 19640070 (Version 3)
Quarter: 2021Q4

REPORT INFORMATION
  Report Type: Spontaneous
  Country: JP (occurrence: JP)
  Receive Date: 20210730
  Receipt Date: 20211017
  Transmission Date: 20220303
  Serious: Yes (Death)
  Sender: FDA-Public Use
  Company Number: JP-ABBVIE-21K-087-4017914-00

PATIENT
  Age: 83 Year
  Sex: Male
  Weight: 62 kg

DRUGS (21)
  1. CARBIDOPA\LEVODOPA [Suspect]
     Active Substance: CARBIDOPA\LEVODOPA
     Indication: Parkinson^s disease
     Dosage: MD: 12 ML?CD: 3.2 ML/HR?ED: 2.0 ML/UNIT
     Route: 050
     Dates: start: 20210721, end: 20210725
  2. CARBIDOPA\LEVODOPA [Suspect]
     Active Substance: CARBIDOPA\LEVODOPA
  3. ENTACAPONE [Concomitant]
     Active Substance: ENTACAPONE
     Indication: Product used for unknown indication
     Route: 048
     Dates: end: 20210720
  4. LEVOTHYROXINE [Concomitant]
     Active Substance: LEVOTHYROXINE
     Indication: Hypothyroidism
     Route: 048
     Dates: end: 20210723
  5. MAGNESIUM OXIDE [Concomitant]
     Active Substance: MAGNESIUM OXIDE
     Indication: Constipation
     Route: 048
     Dates: end: 20210723
  6. TADALAFIL [Concomitant]
     Active Substance: TADALAFIL
     Indication: Dysuria
     Route: 048
     Dates: end: 20210723
  7. PERGOLIDE MESILATE [Concomitant]
     Indication: Product used for unknown indication
     Route: 048
     Dates: end: 20210723
  8. SAFINAMIDE MESYLATE [Concomitant]
     Active Substance: SAFINAMIDE MESYLATE
     Indication: Product used for unknown indication
     Route: 048
     Dates: end: 20210723
  9. ISTRADEFYLLINE [Concomitant]
     Active Substance: ISTRADEFYLLINE
     Indication: Product used for unknown indication
     Route: 048
     Dates: end: 20210723
  10. BENSERAZIDE HYDROCHLORIDE\LEVODOPA [Concomitant]
     Active Substance: BENSERAZIDE HYDROCHLORIDE\LEVODOPA
     Indication: Product used for unknown indication
     Route: 048
     Dates: end: 20210720
  11. DOMPERIDONE [Concomitant]
     Active Substance: DOMPERIDONE
     Indication: Prophylaxis
     Route: 048
  12. DOPAMINE HYDROCHLORIDE [Concomitant]
     Active Substance: DOPAMINE HYDROCHLORIDE
     Indication: Product used for unknown indication
     Dates: start: 20210724
  13. NOREPINEPHRINE [Concomitant]
     Active Substance: NOREPINEPHRINE
     Indication: Product used for unknown indication
     Dates: start: 20210724
  14. EPINEPHRINE [Concomitant]
     Active Substance: EPINEPHRINE
     Indication: Product used for unknown indication
     Route: 028
     Dates: start: 20210725, end: 20210725
  15. EPINEPHRINE [Concomitant]
     Active Substance: EPINEPHRINE
     Route: 028
     Dates: start: 20210725, end: 20210725
  16. EPINEPHRINE [Concomitant]
     Active Substance: EPINEPHRINE
     Route: 028
     Dates: start: 20210725, end: 20210725
  17. EPINEPHRINE [Concomitant]
     Active Substance: EPINEPHRINE
     Route: 028
     Dates: start: 20210725, end: 20210725
  18. EPINEPHRINE [Concomitant]
     Active Substance: EPINEPHRINE
     Route: 028
     Dates: start: 20210725, end: 20210725
  19. EPINEPHRINE [Concomitant]
     Active Substance: EPINEPHRINE
     Route: 028
     Dates: start: 20210725, end: 20210725
  20. EPINEPHRINE [Concomitant]
     Active Substance: EPINEPHRINE
     Route: 028
     Dates: start: 20210725, end: 20210725
  21. EPINEPHRINE [Concomitant]
     Active Substance: EPINEPHRINE
     Route: 028
     Dates: start: 20210725

REACTIONS (8)
  - Asphyxia [Fatal]
  - Vomiting [Fatal]
  - Hypoxic-ischaemic encephalopathy [Fatal]
  - Multiple organ dysfunction syndrome [Fatal]
  - Pneumonia aspiration [Fatal]
  - Aspiration [Fatal]
  - Hypoxic-ischaemic encephalopathy [Fatal]
  - Ileus paralytic [Unknown]

NARRATIVE: CASE EVENT DATE: 20210101
